FAERS Safety Report 16093802 (Version 1)
Quarter: 2019Q1

REPORT INFORMATION
  Report Type: Report from Study
  Country: None (occurrence: BR)
  Receive Date: 20190320
  Receipt Date: 20190320
  Transmission Date: 20190418
  Serious: Yes (Hospitalization, Disabling, Other)
  Sender: FDA-Public Use
  Company Number: BR-ABBVIE-19K-020-2705257-00

PATIENT
  Sex: Female

DRUGS (1)
  1. HUMIRA [Suspect]
     Active Substance: ADALIMUMAB
     Indication: RHEUMATOID ARTHRITIS
     Route: 058
     Dates: end: 201812

REACTIONS (6)
  - Poor peripheral circulation [Unknown]
  - Venous thrombosis limb [Not Recovered/Not Resolved]
  - Malaise [Unknown]
  - Pulmonary embolism [Unknown]
  - Thrombosis [Unknown]
  - Gait inability [Unknown]

NARRATIVE: CASE EVENT DATE: 201803
